FAERS Safety Report 9520715 (Version 1)
Quarter: 2013Q3

REPORT INFORMATION
  Report Type: Spontaneous
  Country: GB (occurrence: None)
  Receive Date: 20130911
  Receipt Date: 20130911
  Transmission Date: 20140515
  Serious: Yes (Hospitalization, Other)
  Sender: FDA-Public Use
  Company Number: AUR-APL-2013-07426

PATIENT
  Age: 81 Year
  Sex: Female

DRUGS (1)
  1. CIPROFLOXACIN (CIPROFLOXACIN) [Suspect]
     Indication: LOWER RESPIRATORY TRACT INFECTION
     Dosage: 1000 MG (500 MG, 2 IN 1 D)
     Route: 048
     Dates: end: 20121107

REACTIONS (2)
  - Treatment failure [None]
  - Vomiting [None]
